FAERS Safety Report 7726348-0 (Version None)
Quarter: 2011Q3

REPORT INFORMATION
  Report Type: 
  Country: None (occurrence: None)
  Receive Date: 20110902
  Receipt Date: 20110826
  Transmission Date: 20111222
  Serious: Yes (Other)
  Sender: FDA-Public Use
  Company Number: US-BAYER-2011-078173

PATIENT
  Sex: Male
  Weight: 108 kg

DRUGS (8)
  1. MULTIVITAMIN PREPARATION + MINERAL SUPPLEMENT [Concomitant]
  2. IPILIMUMAB [Suspect]
     Dosage: DAILY DOSE 10 MG/KG
     Route: 042
     Dates: start: 20110803, end: 20110822
  3. SARGRAMOSTIM [Suspect]
     Dosage: DAILY DOSE 250 MCG/24HR
     Route: 058
     Dates: start: 20110803, end: 20110822
  4. ATARAX [ALPRAZOLAM] [Concomitant]
     Dosage: DAILY DOSE 25 MG
  5. ACETYLSALICYLIC ACID SRT [Concomitant]
     Dosage: DAILY DOSE 325 MG
  6. SIMVASTATIN [Concomitant]
     Dosage: DAILY DOSE 10 MG
  7. OMEGA-3 FATTY ACIDS [Concomitant]
     Dosage: 1 CAP DAILY
  8. ACETAMINOPHEN [Concomitant]
     Dosage: PER PM

REACTIONS (1)
  - HYPERURICAEMIA [None]
